FAERS Safety Report 23825792 (Version 1)
Quarter: 2024Q2

REPORT INFORMATION
  Report Type: Spontaneous
  Country: US (occurrence: US)
  Receive Date: 20240507
  Receipt Date: 20240507
  Transmission Date: 20240716
  Serious: No
  Sender: FDA-Public Use
  Company Number: US-TEVA-VS-3186804

PATIENT
  Age: 25 Year
  Sex: Female

DRUGS (4)
  1. METHYLPHENIDATE HYDROCHLORIDE [Suspect]
     Active Substance: METHYLPHENIDATE HYDROCHLORIDE
     Indication: Attention deficit hyperactivity disorder
     Route: 065
  2. METHYLPHENIDATE HYDROCHLORIDE [Suspect]
     Active Substance: METHYLPHENIDATE HYDROCHLORIDE
     Indication: Attention deficit hyperactivity disorder
     Route: 065
  3. B12 [Concomitant]
  4. LYSINE [Concomitant]
     Active Substance: LYSINE
     Indication: Aphthous ulcer

REACTIONS (3)
  - Aphthous ulcer [Unknown]
  - Abdominal pain upper [Unknown]
  - Hypersensitivity [Unknown]
